FAERS Safety Report 10398642 (Version 2)
Quarter: 2014Q3

REPORT INFORMATION
  Report Type: Report from Study
  Country: DE (occurrence: DE)
  Receive Date: 20140821
  Receipt Date: 20140924
  Transmission Date: 20150326
  Serious: Yes (Hospitalization, Other)
  Sender: FDA-Public Use
  Company Number: DE-SA-2014SA107279

PATIENT
  Age: 52 Year
  Sex: Female
  Weight: 101 kg

DRUGS (2)
  1. CABAZITAXEL [Suspect]
     Active Substance: CABAZITAXEL
     Indication: BREAST CANCER
     Route: 042
     Dates: start: 20140515, end: 20140515
  2. CABAZITAXEL [Suspect]
     Active Substance: CABAZITAXEL
     Indication: BREAST CANCER
     Route: 042
     Dates: start: 20140717, end: 20140717

REACTIONS (2)
  - Ureteric stenosis [Not Recovered/Not Resolved]
  - Renal pain [Recovered/Resolved with Sequelae]

NARRATIVE: CASE EVENT DATE: 20140718
